FAERS Safety Report 6711374-0 (Version None)
Quarter: 2010Q2

REPORT INFORMATION
  Report Type: 
  Country: None (occurrence: None)
  Receive Date: 20100505
  Receipt Date: 20100423
  Transmission Date: 20101027
  Serious: Yes (Other)
  Sender: FDA-Public Use
  Company Number: BR-PFIZER INC-2010051597

PATIENT
  Age: 23 Year
  Sex: Male
  Weight: 100 kg

DRUGS (2)
  1. FRONTAL [Suspect]
     Indication: INSOMNIA
     Dosage: UNK
     Route: 048
  2. AGOMELATINE [Concomitant]
     Dosage: UNK

REACTIONS (4)
  - DYSPNOEA [None]
  - MUSCULAR WEAKNESS [None]
  - TONGUE PARALYSIS [None]
  - TREMOR [None]
